FAERS Safety Report 18280175 (Version 4)
Quarter: 2022Q2

REPORT INFORMATION
  Report Type: Spontaneous
  Country: US (occurrence: US)
  Receive Date: 20200917
  Receipt Date: 20220414
  Transmission Date: 20220721
  Serious: No
  Sender: FDA-Public Use
  Company Number: US-PFIZER INC-2020088865

PATIENT
  Age: 16 Year
  Sex: Female

DRUGS (4)
  1. RAPAMUNE [Suspect]
     Active Substance: SIROLIMUS
     Indication: Lymphocele
     Dosage: 2.5 MG, 2X/DAY (TWO 1MG TABS WITH 0.5MG TAB TWICE A DAY FOR A TOTAL OF 2.5MG TWICE A DAY)
     Route: 048
  2. RAPAMUNE [Suspect]
     Active Substance: SIROLIMUS
     Dosage: 2 MG, 2X/DAY (1 MG , TAKE 2 TABLET 2 TIMES A DAY)
     Route: 048
  3. RAPAMUNE [Suspect]
     Active Substance: SIROLIMUS
     Dosage: 1 MG, 2X/DAY
     Route: 048
  4. RAPAMUNE [Suspect]
     Active Substance: SIROLIMUS
     Dosage: 2.5 MG, (1MG IN AM AND 1.5 MG IN PM)
     Route: 048

REACTIONS (2)
  - Off label use [Unknown]
  - Drug level abnormal [Recovering/Resolving]

NARRATIVE: CASE EVENT DATE: 20200831
